FAERS Safety Report 4510657-2 (Version None)
Quarter: 2004Q4

REPORT INFORMATION
  Report Type: 
  Country: None (occurrence: None)
  Receive Date: 20041123
  Receipt Date: 20041109
  Transmission Date: 20050328
  Serious: Yes (Other)
  Sender: FDA-Public Use
  Company Number: 2004-BP-11598RO

PATIENT
  Age: 73 Year
  Sex: Female

DRUGS (1)
  1. CODEINE SUL TAB [Suspect]
     Indication: BACK PAIN
     Dosage: 30 MG QID (30 MG, 4 IN 1 D), PO
     Route: 048

REACTIONS (14)
  - BLOOD PHOSPHORUS INCREASED [None]
  - CEREBRAL INFARCTION [None]
  - ELECTROENCEPHALOGRAM ABNORMAL [None]
  - GRAND MAL CONVULSION [None]
  - HEADACHE [None]
  - HEART RATE INCREASED [None]
  - HYPOTENSION [None]
  - MIOSIS [None]
  - OXYGEN SATURATION DECREASED [None]
  - POSTICTAL STATE [None]
  - RESPIRATORY RATE INCREASED [None]
  - SOMNOLENCE [None]
  - STUPOR [None]
  - VOMITING [None]
